FAERS Safety Report 4485124-5 (Version None)
Quarter: 2004Q4

REPORT INFORMATION
  Report Type: 
  Country: None (occurrence: None)
  Receive Date: 20041026
  Receipt Date: 20031031
  Transmission Date: 20050328
  Serious: No
  Sender: FDA-Public Use
  Company Number: US-BRISTOL-MYERS SQUIBB COMPANY-12423984

PATIENT
  Age: 60 Year
  Sex: Male
  Weight: 98 kg

DRUGS (1)
  1. GLUCOPHAGE XR [Suspect]
     Indication: DIABETES MELLITUS
     Route: 048
     Dates: start: 20031024

REACTIONS (1)
  - BLOOD GLUCOSE INCREASED [None]
